FAERS Safety Report 6906439-4 (Version None)
Quarter: 2010Q3

REPORT INFORMATION
  Report Type: 
  Country: None (occurrence: None)
  Receive Date: 20100804
  Receipt Date: 20100728
  Transmission Date: 20110219
  Serious: Yes (Hospitalization)
  Sender: FDA-Public Use
  Company Number: B0667883A

PATIENT
  Sex: Female

DRUGS (4)
  1. TYVERB [Suspect]
     Indication: BREAST CANCER
     Dosage: 1250MG PER DAY
     Route: 048
     Dates: start: 20100624
  2. XELODA [Concomitant]
     Route: 065
  3. TENORMIN [Concomitant]
     Route: 065
  4. LETROX [Concomitant]
     Route: 065

REACTIONS (6)
  - DEHYDRATION [None]
  - DIARRHOEA [None]
  - GILBERT'S SYNDROME [None]
  - HYPOKALAEMIA [None]
  - PALMAR-PLANTAR ERYTHRODYSAESTHESIA SYNDROME [None]
  - RENAL FAILURE [None]
